FAERS Safety Report 25854757 (Version 2)
Quarter: 2025Q4

REPORT INFORMATION
  Report Type: Spontaneous
  Country: EU (occurrence: EU)
  Receive Date: 20250927
  Receipt Date: 20251022
  Transmission Date: 20260118
  Serious: Yes (Hospitalization, Other)
  Sender: SANOFI AVENTIS
  Company Number: EU-SA-2025SA286638

PATIENT
  Age: 79 Year
  Sex: Female

DRUGS (5)
  1. DUPIXENT [Suspect]
     Active Substance: DUPILUMAB
     Indication: Nasal polyps
     Dosage: UNK UNK, QOW
     Dates: start: 20250625, end: 2025
  2. DUPIXENT [Suspect]
     Active Substance: DUPILUMAB
     Indication: Bronchiectasis
  3. PANTOPRAZOLE SODIUM [Concomitant]
     Active Substance: PANTOPRAZOLE SODIUM
     Dosage: UNK, QD
  4. NORVASC [Concomitant]
     Active Substance: AMLODIPINE BESYLATE
     Dosage: UNK UNK, BID
  5. Novalgin [Concomitant]
     Dosage: UNK, QID (AS NEEDED UP TO 4 TIMES DAILY)

REACTIONS (25)
  - General physical health deterioration [Unknown]
  - Pyrexia [Recovering/Resolving]
  - Pain [Not Recovered/Not Resolved]
  - Bacterial infection [Recovering/Resolving]
  - Chronic eosinophilic leukaemia [Unknown]
  - Angiomyolipoma [Unknown]
  - Myalgia [Unknown]
  - Eosinophil count increased [Unknown]
  - Arthralgia [Unknown]
  - Hypertension [Unknown]
  - Night sweats [Not Recovered/Not Resolved]
  - Nyctalgia [Recovering/Resolving]
  - Pollakiuria [Unknown]
  - Fatigue [Unknown]
  - Leukocytosis [Unknown]
  - Dysuria [Unknown]
  - Pleural effusion [Unknown]
  - Renal cyst [Unknown]
  - Diverticulum intestinal [Unknown]
  - Intervertebral disc degeneration [Unknown]
  - Aortic valve stenosis [Unknown]
  - Aortic valve calcification [Unknown]
  - Neck pain [Recovered/Resolved]
  - Eosinophilia [Unknown]
  - Product use in unapproved indication [Unknown]

NARRATIVE: CASE EVENT DATE: 20250101
